FAERS Safety Report 17875852 (Version 1)
Quarter: 2020Q2

REPORT INFORMATION
  Report Type: Spontaneous
  Country: FI (occurrence: FI)
  Receive Date: 20200609
  Receipt Date: 20200609
  Transmission Date: 20200714
  Serious: Yes (Other)
  Sender: FDA-Public Use
  Company Number: FI-OTSUKA-2020_013687

PATIENT
  Age: 38 Year
  Sex: Male

DRUGS (5)
  1. FROIDIR [Suspect]
     Active Substance: CLOZAPINE
     Indication: SCHIZOPHRENIA
     Dosage: UNK
     Route: 048
  2. VENLAFAXINE [Suspect]
     Active Substance: VENLAFAXINE HYDROCHLORIDE
     Dosage: UNK (DECREASED DOSE)
     Route: 065
  3. ABILIFY [Suspect]
     Active Substance: ARIPIPRAZOLE
     Indication: PRODUCT USED FOR UNKNOWN INDICATION
     Dosage: UNK
     Route: 048
  4. VENLAFAXINE [Suspect]
     Active Substance: VENLAFAXINE HYDROCHLORIDE
     Indication: PRODUCT USED FOR UNKNOWN INDICATION
     Dosage: UNK
     Route: 065
  5. FROIDIR [Suspect]
     Active Substance: CLOZAPINE
     Dosage: UNK (DECREASED DOSE)
     Route: 048

REACTIONS (15)
  - Nicotine dependence [Recovered/Resolved]
  - Gambling disorder [Recovering/Resolving]
  - Salivary hypersecretion [Recovering/Resolving]
  - Ankle fracture [Unknown]
  - Alcoholism [Recovered/Resolved]
  - Emotional poverty [Recovering/Resolving]
  - Heart rate increased [Recovering/Resolving]
  - Memory impairment [Not Recovered/Not Resolved]
  - Altered state of consciousness [Recovering/Resolving]
  - General physical health deterioration [Recovering/Resolving]
  - Disorientation [Recovering/Resolving]
  - Malaise [Unknown]
  - Economic problem [Unknown]
  - Coordination abnormal [Recovering/Resolving]
  - Weight increased [Recovering/Resolving]
